FAERS Safety Report 17434647 (Version 2)
Quarter: 2020Q1

REPORT INFORMATION
  Report Type: Spontaneous
  Country: US (occurrence: US)
  Receive Date: 20200219
  Receipt Date: 20200225
  Transmission Date: 20200409
  Serious: Yes (Death)
  Sender: FDA-Public Use
  Company Number: US-MYLANLABS-2020M1016707

PATIENT
  Age: 91 Year
  Sex: Female

DRUGS (1)
  1. VALSARTAN AND HYDROCHLOROTHIAZIDE TABLETS, USP [Suspect]
     Active Substance: HYDROCHLOROTHIAZIDE\VALSARTAN
     Indication: PRODUCT USED FOR UNKNOWN INDICATION
     Dosage: UNK UNK, QD
     Route: 048
     Dates: start: 2012, end: 201908

REACTIONS (11)
  - Weight decreased [Unknown]
  - Cough [Unknown]
  - Pain [Unknown]
  - Back disorder [Unknown]
  - Dizziness [Unknown]
  - Sleep disorder [Unknown]
  - Decreased appetite [Unknown]
  - Muscle spasms [Unknown]
  - Fatigue [Unknown]
  - Lymphoma [Fatal]
  - Aphonia [Unknown]
